FAERS Safety Report 21944754 (Version 3)
Quarter: 2023Q1

REPORT INFORMATION
  Report Type: Report from Study
  Country: GB (occurrence: GB)
  Receive Date: 20230202
  Receipt Date: 20230315
  Transmission Date: 20230418
  Serious: Yes (Hospitalization, Other)
  Sender: FDA-Public Use
  Company Number: GB-GLAXOSMITHKLINE-GB2023EME013268

PATIENT

DRUGS (2)
  1. MEPOLIZUMAB [Suspect]
     Active Substance: MEPOLIZUMAB
     Indication: Asthma
     Dosage: 100 MG, Z, EVERY 4 WEEKS
     Dates: start: 202208
  2. MEPOLIZUMAB [Suspect]
     Active Substance: MEPOLIZUMAB
     Dosage: 100 MG
     Dates: start: 202208

REACTIONS (10)
  - Hospitalisation [Unknown]
  - Lumbar vertebral fracture [Unknown]
  - Crohn^s disease [Unknown]
  - Back pain [Unknown]
  - Body temperature increased [Unknown]
  - Dyspnoea [Unknown]
  - Pain in extremity [Unknown]
  - Muscular weakness [Unknown]
  - Drug ineffective [Unknown]
  - Product administration error [Unknown]
